FAERS Safety Report 20740215 (Version 1)
Quarter: 2022Q2

REPORT INFORMATION
  Report Type: Spontaneous
  Country: US (occurrence: US)
  Receive Date: 20220422
  Receipt Date: 20220422
  Transmission Date: 20220720
  Serious: No
  Sender: FDA-Public Use
  Company Number: US-ARBOR PHARMACEUTICALS, LLC-US-2021ARB000432

PATIENT
  Sex: Female

DRUGS (2)
  1. EDARBI [Suspect]
     Active Substance: AZILSARTAN KAMEDOXOMIL
     Indication: Product used for unknown indication
     Dosage: 80 MG, QD
     Route: 048
  2. EDARBI [Suspect]
     Active Substance: AZILSARTAN KAMEDOXOMIL
     Dosage: 40 MG IN MORNING, 40 MG AT NIGHT

REACTIONS (6)
  - Pain in extremity [Unknown]
  - Gait disturbance [Unknown]
  - Muscular weakness [Unknown]
  - Muscle spasms [Unknown]
  - Asthenia [Unknown]
  - Wrong technique in product usage process [Unknown]
